FAERS Safety Report 19837081 (Version 1)
Quarter: 2021Q3

REPORT INFORMATION
  Report Type: Report from Study
  Country: US (occurrence: US)
  Receive Date: 20210916
  Receipt Date: 20210916
  Transmission Date: 20211014
  Serious: Yes (Other)
  Sender: FDA-Public Use
  Company Number: US-ROCHE-2908933

PATIENT
  Age: 29 Year
  Sex: Female
  Weight: 59.1 kg

DRUGS (3)
  1. ATEZOLIZUMAB. [Suspect]
     Active Substance: ATEZOLIZUMAB
     Indication: NON-SMALL CELL LUNG CANCER
     Dosage: THE DATE OF LAST ADMINISTERED ATEZOLIZUMAB 31/MAR/2021
     Route: 041
     Dates: start: 20210203
  2. LASIX [Concomitant]
     Active Substance: FUROSEMIDE
  3. COBIMETINIB. [Suspect]
     Active Substance: COBIMETINIB
     Indication: NON-SMALL CELL LUNG CANCER
     Dosage: DOSE REDUCED, THE DATE OF LAST ADMINISTERED 20/APR/2021
     Route: 048
     Dates: start: 20210203

REACTIONS (2)
  - Normocytic anaemia [Recovered/Resolved]
  - Hypokalaemia [Recovered/Resolved]

NARRATIVE: CASE EVENT DATE: 20210428
